FAERS Safety Report 24581642 (Version 1)
Quarter: 2024Q4

REPORT INFORMATION
  Report Type: Spontaneous
  Country: US (occurrence: US)
  Receive Date: 20241105
  Receipt Date: 20241105
  Transmission Date: 20250115
  Serious: Yes (Hospitalization, Other)
  Sender: GLAND PHARMA LTD
  Company Number: US-GLANDPHARMA-US-2024GLNLIT00941

PATIENT
  Age: 61 Year
  Sex: Male

DRUGS (3)
  1. HEPARIN SODIUM [Suspect]
     Active Substance: HEPARIN SODIUM
     Indication: Thrombosis
     Route: 058
  2. IMMUNE GLOBULIN NOS [Suspect]
     Active Substance: IMMUNE GLOBULIN NOS
     Indication: Supportive care
     Route: 042
  3. FONDAPARINUX [Suspect]
     Active Substance: FONDAPARINUX
     Indication: Supportive care
     Route: 065

REACTIONS (2)
  - Ocular ischaemic syndrome [Recovering/Resolving]
  - Heparin-induced thrombocytopenia [Recovering/Resolving]
